FAERS Safety Report 8768167 (Version 4)
Quarter: 2012Q4

REPORT INFORMATION
  Report Type: Report from Study
  Country: US (occurrence: US)
  Receive Date: 20120905
  Receipt Date: 20121121
  Transmission Date: 20130627
  Serious: Yes (Hospitalization)
  Sender: FDA-Public Use
  Company Number: US-GLAXOSMITHKLINE-A0992017A

PATIENT
  Age: 65 Year
  Sex: Female
  Weight: 80.1 kg

DRUGS (10)
  1. FLUTICASONE/SALMETEROL [Suspect]
     Indication: CHRONIC OBSTRUCTIVE PULMONARY DISEASE
     Route: 055
     Dates: start: 20110921
  2. SALBUTAMOL [Suspect]
     Indication: CHRONIC OBSTRUCTIVE PULMONARY DISEASE
     Dosage: 90MCG As required
     Route: 055
     Dates: start: 20120307
  3. BLINDED STUDY MEDICATION [Concomitant]
     Indication: CHRONIC OBSTRUCTIVE PULMONARY DISEASE
     Route: 048
     Dates: start: 20120307
  4. METFORMIN [Concomitant]
     Route: 048
  5. METOPROLOL [Concomitant]
     Route: 048
  6. ATORVASTATIN [Concomitant]
     Route: 048
  7. VITAMIN D3 [Concomitant]
     Route: 048
  8. OCUVITE [Concomitant]
     Route: 048
  9. SPIRIVA [Concomitant]
     Route: 055
  10. FERROUS FUMERATE + FOLIC ACID [Concomitant]
     Route: 048

REACTIONS (2)
  - Dyspnoea [Recovered/Resolved]
  - Non-cardiac chest pain [Recovered/Resolved]
